FAERS Safety Report 21377969 (Version 1)
Quarter: 2022Q3

REPORT INFORMATION
  Report Type: Spontaneous
  Country: CN (occurrence: None)
  Receive Date: 20220926
  Receipt Date: 20220926
  Transmission Date: 20221027
  Serious: Yes (Death, Other)
  Sender: FDA-Public Use
  Company Number: 2022A328158

PATIENT
  Age: 61 Year
  Sex: Male
  Weight: 49 kg

DRUGS (2)
  1. IMFINZI [Suspect]
     Active Substance: DURVALUMAB
     Indication: Small cell lung cancer extensive stage
     Dosage: 100.0MG UNKNOWN
     Route: 042
     Dates: start: 20220804, end: 20220804
  2. ETOPOSIDE/CARBOPLATIN [Concomitant]

REACTIONS (7)
  - Death [Fatal]
  - Renal failure [Unknown]
  - Dyspepsia [Unknown]
  - Platelet count decreased [Unknown]
  - Cholecystitis [Unknown]
  - Vomiting [Unknown]
  - Pyrexia [Unknown]
